FAERS Safety Report 7905702-8 (Version None)
Quarter: 2011Q4

REPORT INFORMATION
  Report Type: 
  Country: None (occurrence: None)
  Receive Date: 20111108
  Receipt Date: 20111024
  Transmission Date: 20120403
  Serious: Yes (Other)
  Sender: FDA-Public Use
  Company Number: 2011MA015693

PATIENT
  Age: 78 Year
  Sex: Female

DRUGS (2)
  1. CITALOPRAM HYDROBROMIDE [Concomitant]
  2. TRAMADOL HYDROCHLORIDE [Suspect]
     Indication: PAIN

REACTIONS (1)
  - SEROTONIN SYNDROME [None]
